FAERS Safety Report 9911567 (Version 1)
Quarter: 2014Q1

REPORT INFORMATION
  Report Type: Report from Study
  Country: NL (occurrence: NL)
  Receive Date: 20140219
  Receipt Date: 20140219
  Transmission Date: 20141002
  Serious: Yes (Hospitalization)
  Sender: FDA-Public Use
  Company Number: PHHY2014NL019589

PATIENT
  Age: 80 Year
  Sex: Male

DRUGS (3)
  1. ZOMETA [Suspect]
     Indication: PROSTATE CANCER
     Dosage: 4 MG PER 100 ML 1X PER 4 WEEKS
     Route: 042
  2. ZOMETA [Suspect]
     Dosage: 4 MG PER 100 ML 1X PER 4 WEEKS
     Route: 042
     Dates: start: 20130828
  3. ZOMETA [Suspect]
     Dosage: 4 MG PER 100 ML 1X PER 4 WEEKS
     Route: 042
     Dates: start: 20140115

REACTIONS (1)
  - Respiratory tract infection [Recovering/Resolving]
